FAERS Safety Report 6958660-7 (Version None)
Quarter: 2010Q3

REPORT INFORMATION
  Report Type: 
  Country: None (occurrence: None)
  Receive Date: 20100830
  Receipt Date: 20100830
  Transmission Date: 20110219
  Serious: Yes (Disabling)
  Sender: FDA-Public Use
  Company Number: None

PATIENT
  Age: 68 Year
  Sex: Female
  Weight: 97.977 kg

DRUGS (1)
  1. SEROQUEL XR [Suspect]
     Indication: MAJOR DEPRESSION
     Dosage: 150MG QHS PO
     Route: 048
     Dates: start: 20100419, end: 20100423

REACTIONS (2)
  - JAW DISORDER [None]
  - TRISMUS [None]
